FAERS Safety Report 20381658 (Version 1)
Quarter: 2022Q1

REPORT INFORMATION
  Report Type: Spontaneous
  Country: US (occurrence: US)
  Receive Date: 20220127
  Receipt Date: 20220127
  Transmission Date: 20220423
  Serious: No
  Sender: FDA-Public Use
  Company Number: US-JNJFOC-20220133944

PATIENT
  Sex: Female

DRUGS (1)
  1. WOMENS ROGAINE UNSCENTED [Suspect]
     Active Substance: MINOXIDIL
     Indication: Alopecia
     Dosage: 1/2 CAP 1X A DAY
     Route: 065
     Dates: start: 20220114

REACTIONS (3)
  - Hair texture abnormal [Unknown]
  - Product physical consistency issue [Unknown]
  - Poor quality product administered [Unknown]
